FAERS Safety Report 7435085-1 (Version None)
Quarter: 2011Q2

REPORT INFORMATION
  Report Type: 
  Country: None (occurrence: None)
  Receive Date: 20110425
  Receipt Date: 20110413
  Transmission Date: 20111010
  Serious: Yes (Other)
  Sender: FDA-Public Use
  Company Number: PHHY2010CA10464

PATIENT
  Sex: Male

DRUGS (14)
  1. ACETAMINOPHEN [Concomitant]
     Dosage: UNK
  2. DOVONEX [Concomitant]
     Dosage: 50 MG, UNK
  3. EXJADE [Suspect]
     Dosage: 2000 MG, QD
     Route: 048
     Dates: start: 20100701
  4. EXJADE [Suspect]
     Dosage: 2500 MG, QD
     Route: 048
     Dates: end: 20101201
  5. BETAMETHASONE [Concomitant]
  6. ASPIRIN [Concomitant]
  7. OXYCODONE HCL AND ACETAMINOPHEN [Concomitant]
  8. EXJADE [Suspect]
     Dosage: 1000 MG, QD
     Route: 048
     Dates: start: 20100304
  9. EXJADE [Suspect]
     Indication: MYELODYSPLASTIC SYNDROME
     Dosage: 750 MG, QD
     Route: 048
     Dates: start: 20100124
  10. ZOCOR [Concomitant]
     Dosage: 40 MG, QD
     Route: 048
  11. CLOTRIMAZOLE [Concomitant]
  12. VASOTEC [Concomitant]
     Dosage: 10 MG, QD
     Route: 048
  13. VITAMIN D [Concomitant]
  14. VITAMIN A [Concomitant]

REACTIONS (12)
  - CHEST PAIN [None]
  - DEAFNESS [None]
  - HEADACHE [None]
  - DIARRHOEA [None]
  - NASOPHARYNGITIS [None]
  - BLOOD CREATININE INCREASED [None]
  - SPLENOMEGALY [None]
  - MALAISE [None]
  - BLOOD POTASSIUM INCREASED [None]
  - COUGH [None]
  - SERUM FERRITIN INCREASED [None]
  - DRUG INEFFECTIVE [None]
